FAERS Safety Report 18571754 (Version 1)
Quarter: 2020Q4

REPORT INFORMATION
  Report Type: Spontaneous
  Country: JP (occurrence: JP)
  Receive Date: 20201202
  Receipt Date: 20201202
  Transmission Date: 20210114
  Serious: Yes (Other)
  Sender: FDA-Public Use
  Company Number: JP-SA-2020SA345797

PATIENT

DRUGS (12)
  1. MIYA-BM [Concomitant]
     Active Substance: CLOSTRIDIUM BUTYRICUM SPORES STRAIN M-55
     Dosage: UNK
     Route: 048
  2. AZUNOL [GUAIAZULENE] [Concomitant]
     Active Substance: GUAIAZULENE
     Dosage: UNK
  3. CEREKINON [Concomitant]
     Active Substance: TRIMEBUTINE
     Dosage: UNK
     Route: 048
  4. MYSLEE [Suspect]
     Active Substance: ZOLPIDEM TARTRATE
     Indication: INSOMNIA
     Dosage: 5 MG, QD
     Route: 048
  5. IRRIBOW [Suspect]
     Active Substance: RAMOSETRON HYDROCHLORIDE
     Indication: IRRITABLE BOWEL SYNDROME
     Dosage: UNK
     Route: 048
  6. LYRICA [Concomitant]
     Active Substance: PREGABALIN
     Dosage: UNK
  7. MYSLEE [Suspect]
     Active Substance: ZOLPIDEM TARTRATE
     Dosage: 7.5 MG, QD
     Route: 048
  8. MYSLEE [Suspect]
     Active Substance: ZOLPIDEM TARTRATE
     Dosage: 2.5 MG, QD (ADDED AS SECOND TIME)
     Route: 048
  9. POLYCARBOPHIL [Suspect]
     Active Substance: POLYCARBOPHIL
     Indication: IRRITABLE BOWEL SYNDROME
     Dosage: UNK
     Route: 048
  10. MYSLEE [Suspect]
     Active Substance: ZOLPIDEM TARTRATE
     Dosage: 12.5 MG, QD
     Route: 048
  11. DEPAS [ETIZOLAM] [Suspect]
     Active Substance: ETIZOLAM
     Indication: DEPRESSION
     Dosage: UNK
     Route: 048
  12. ASVERIN (TIPEPIDINE HIBENZATE) [Suspect]
     Active Substance: TIPEPIDINE HIBENZATE
     Indication: NASOPHARYNGITIS
     Dosage: UNK
     Route: 048

REACTIONS (18)
  - Near death experience [Unknown]
  - Middle insomnia [Unknown]
  - Vertigo [Unknown]
  - Diarrhoea [Unknown]
  - Anal prolapse [Unknown]
  - Temporomandibular joint syndrome [Unknown]
  - Head discomfort [Unknown]
  - Physical deconditioning [Unknown]
  - Drug eruption [Unknown]
  - Overdose [Unknown]
  - Faeces hard [Unknown]
  - Anxiety [Unknown]
  - Wrong technique in product usage process [Unknown]
  - Nervousness [Unknown]
  - Sleep talking [Unknown]
  - Insomnia [Unknown]
  - Headache [Unknown]
  - Dizziness postural [Unknown]
